FAERS Safety Report 12318679 (Version 1)
Quarter: 2016Q2

REPORT INFORMATION
  Report Type: Spontaneous
  Country: US (occurrence: US)
  Receive Date: 20160429
  Receipt Date: 20160429
  Transmission Date: 20160815
  Serious: No
  Sender: FDA-Public Use
  Company Number: GXBR2015US001389

PATIENT
  Sex: Female

DRUGS (1)
  1. IMIPRAMINE HCL TABLETS USP [Suspect]
     Active Substance: IMIPRAMINE HYDROCHLORIDE
     Indication: PANIC DISORDER
     Dosage: 25 MG, TID
     Route: 048
     Dates: start: 201503

REACTIONS (1)
  - Night sweats [Not Recovered/Not Resolved]
